FAERS Safety Report 5720478-0 (Version None)
Quarter: 2008Q2

REPORT INFORMATION
  Report Type: 
  Country: None (occurrence: None)
  Receive Date: 20080423
  Receipt Date: 20070604
  Transmission Date: 20081010
  Serious: No
  Sender: FDA-Public Use
  Company Number: 239455

PATIENT
  Age: 63 Year
  Sex: Female

DRUGS (2)
  1. AVASTIN [Suspect]
     Indication: BREAST CANCER METASTATIC
  2. ABRAXANE [Concomitant]

REACTIONS (1)
  - GASTROINTESTINAL PERFORATION [None]
